FAERS Safety Report 9098670 (Version 1)
Quarter: 2013Q1

REPORT INFORMATION
  Report Type: Spontaneous
  Country: CN (occurrence: CN)
  Receive Date: 20130213
  Receipt Date: 20130213
  Transmission Date: 20140127
  Serious: Yes (Other)
  Sender: FDA-Public Use
  Company Number: CN-ROXANE LABORATORIES, INC.-2013-RO-00236RO

PATIENT
  Age: 10 Month
  Sex: Female
  Weight: 9 kg

DRUGS (1)
  1. LEVETIRACETAM [Suspect]
     Indication: POST-TRAUMATIC EPILEPSY
     Dates: start: 20091229, end: 20100520

REACTIONS (1)
  - Blood alkaline phosphatase increased [Recovered/Resolved]
